FAERS Safety Report 18911258 (Version 4)
Quarter: 2021Q2

REPORT INFORMATION
  Report Type: Spontaneous
  Country: US (occurrence: US)
  Receive Date: 20210218
  Receipt Date: 20210503
  Transmission Date: 20210717
  Serious: Yes (Other)
  Sender: FDA-Public Use
  Company Number: US-PFIZER INC-2021148853

PATIENT
  Age: 6 Decade
  Sex: Female

DRUGS (3)
  1. EPINEPHRINE. [Suspect]
     Active Substance: EPINEPHRINE
     Indication: LIP SWELLING
  2. EPINEPHRINE. [Suspect]
     Active Substance: EPINEPHRINE
     Indication: RASH
  3. EPINEPHRINE. [Suspect]
     Active Substance: EPINEPHRINE
     Indication: SWOLLEN TONGUE
     Dosage: UNK

REACTIONS (1)
  - Drug ineffective [Unknown]
